FAERS Safety Report 6420901-2 (Version None)
Quarter: 2009Q4

REPORT INFORMATION
  Report Type: 
  Country: None (occurrence: None)
  Receive Date: 20091028
  Receipt Date: 20091013
  Transmission Date: 20100525
  Serious: Yes (Disabling)
  Sender: FDA-Public Use
  Company Number: 1-20397382

PATIENT
  Age: 79 Year
  Sex: Female
  Weight: 47.6277 kg

DRUGS (5)
  1. WARFARIN SODIUM [Suspect]
     Indication: HEART VALVE OPERATION
     Dosage: 2-4 MG DAILY, ORAL
     Route: 048
     Dates: start: 20000101
  2. DIGOXIN [Concomitant]
  3. LEVOTHYROXINE SODIUM [Concomitant]
  4. POTASSIUM CHLORIDE [Concomitant]
  5. FUROSEMIDE [Concomitant]

REACTIONS (10)
  - ASTHENIA [None]
  - DIZZINESS [None]
  - EXERCISE TOLERANCE DECREASED [None]
  - FEELING OF BODY TEMPERATURE CHANGE [None]
  - FLUID RETENTION [None]
  - GAIT DISTURBANCE [None]
  - INSOMNIA [None]
  - OEDEMA PERIPHERAL [None]
  - PAIN IN EXTREMITY [None]
  - SKIN DISCOLOURATION [None]
